FAERS Safety Report 6373221-9 (Version None)
Quarter: 2009Q3

REPORT INFORMATION
  Report Type: 
  Country: None (occurrence: None)
  Receive Date: 20090924
  Receipt Date: 20090504
  Transmission Date: 20100115
  Serious: Yes (Other)
  Sender: FDA-Public Use
  Company Number: US-ASTRAZENECA-2009UW02022

PATIENT
  Age: 37 Year
  Sex: Male

DRUGS (2)
  1. SEROQUEL [Suspect]
     Indication: SCHIZOPHRENIA
     Dosage: 200 TO 400 MG
     Route: 048
     Dates: start: 20020101, end: 20070101
  2. SEROQUEL [Suspect]
     Indication: INSOMNIA
     Dosage: 200 TO 400 MG
     Route: 048
     Dates: start: 20020101, end: 20070101

REACTIONS (1)
  - PANCREATITIS ACUTE [None]
